FAERS Safety Report 4897002-8 (Version None)
Quarter: 2006Q1

REPORT INFORMATION
  Report Type: 
  Country: None (occurrence: None)
  Receive Date: 20060127
  Receipt Date: 20060116
  Transmission Date: 20060701
  Serious: No
  Sender: FDA-Public Use
  Company Number: ZA200601002784

PATIENT
  Age: 38 Year
  Sex: Male

DRUGS (3)
  1. ZYPREXA [Suspect]
     Indication: BIPOLAR DISORDER
     Dosage: 2.5 MG DAILY (1/D), ORAL
     Route: 048
     Dates: start: 20040701, end: 20051223
  2. LIPITOR [Concomitant]
  3. HUMALOG MIX 75/25 [Concomitant]

REACTIONS (1)
  - POLYCYTHAEMIA [None]
